FAERS Safety Report 7147688-2 (Version None)
Quarter: 2010Q4

REPORT INFORMATION
  Report Type: 
  Country: None (occurrence: None)
  Receive Date: 20101209
  Receipt Date: 20101027
  Transmission Date: 20110411
  Serious: No
  Sender: FDA-Public Use
  Company Number: US-BIOGENIDEC-2010BI042432

PATIENT
  Age: 47 Year
  Sex: Female

DRUGS (1)
  1. TYSABRI [Suspect]
     Indication: MULTIPLE SCLEROSIS
     Route: 042
     Dates: start: 20091207

REACTIONS (8)
  - ASTHENIA [None]
  - FATIGUE [None]
  - HOT FLUSH [None]
  - HYPOAESTHESIA [None]
  - INFUSION SITE HAEMATOMA [None]
  - PERIPHERAL COLDNESS [None]
  - POOR VENOUS ACCESS [None]
  - URINARY TRACT INFECTION [None]
